FAERS Safety Report 8559530-3 (Version None)
Quarter: 2012Q3

REPORT INFORMATION
  Report Type: 
  Country: None (occurrence: None)
  Receive Date: 20120802
  Receipt Date: 20120725
  Transmission Date: 20120928
  Serious: Yes (Hospitalization)
  Sender: FDA-Public Use
  Company Number: US-BAYER-2012-076223

PATIENT
  Age: 33 Year
  Sex: Female

DRUGS (6)
  1. PREDNISONE [Concomitant]
     Dosage: 20 MG, UNK
  2. PEPCID [Concomitant]
  3. VITAMIN B-12 [Concomitant]
  4. CALCIUM [Concomitant]
  5. MULTI-VITAMINS [Concomitant]
  6. YASMIN [Suspect]
     Indication: OVARIAN CYST
     Dosage: UNK
     Dates: start: 20060223, end: 20061124

REACTIONS (4)
  - DYSPNOEA [None]
  - BACK PAIN [None]
  - COUGH [None]
  - PULMONARY EMBOLISM [None]
